FAERS Safety Report 14523061 (Version 1)
Quarter: 2018Q1

REPORT INFORMATION
  Report Type: Report from Study
  Country: DE (occurrence: DE)
  Receive Date: 20180212
  Receipt Date: 20180212
  Transmission Date: 20180509
  Serious: Yes (Other)
  Sender: FDA-Public Use
  Company Number: DE-GILEAD-2018-0320331

PATIENT
  Age: 60 Year
  Sex: Male
  Weight: 71 kg

DRUGS (4)
  1. DOMINAL                            /00002701/ [Concomitant]
     Active Substance: ASPIRIN
     Dosage: UNK
  2. LYRICA [Concomitant]
     Active Substance: PREGABALIN
     Dosage: UNK
  3. RIVOTRIL [Concomitant]
     Active Substance: CLONAZEPAM
     Dosage: UNK
  4. SOFOSBUVIR W/VELPATASVIR [Suspect]
     Active Substance: SOFOSBUVIR\VELPATASVIR
     Indication: CHRONIC HEPATITIS C
     Dosage: 1 DF, QD
     Route: 048
     Dates: start: 20170723, end: 20171014

REACTIONS (2)
  - Bronchial carcinoma [Not Recovered/Not Resolved]
  - Pneumonia [Unknown]

NARRATIVE: CASE EVENT DATE: 20180105
